FAERS Safety Report 25129103 (Version 2)
Quarter: 2025Q3

REPORT INFORMATION
  Report Type: Spontaneous
  Country: US (occurrence: US)
  Receive Date: 20250327
  Receipt Date: 20250910
  Transmission Date: 20251021
  Serious: Yes (Other)
  Sender: ANI
  Company Number: US-ANIPHARMA-2024-US-059895

PATIENT
  Age: 57 Year
  Sex: Female

DRUGS (3)
  1. CORTICOTROPIN [Suspect]
     Active Substance: CORTICOTROPIN
     Indication: Ankylosing spondylitis
     Route: 030
     Dates: start: 202409
  2. VORICONAZOLE [Suspect]
     Active Substance: VORICONAZOLE
  3. MONJAURO [Concomitant]
     Dates: start: 20250408

REACTIONS (11)
  - Flatulence [Recovered/Resolved]
  - Fluid retention [Unknown]
  - Dizziness [Unknown]
  - Musculoskeletal stiffness [Unknown]
  - Product administration error [Recovered/Resolved]
  - Mood altered [Unknown]
  - Weight increased [Unknown]
  - Spinal pain [Unknown]
  - Skin warm [Unknown]
  - Pneumonia [Unknown]
  - Pain [Unknown]

NARRATIVE: CASE EVENT DATE: 20250324
